FAERS Safety Report 16983158 (Version 1)
Quarter: 2019Q4

REPORT INFORMATION
  Report Type: Spontaneous
  Country: US (occurrence: US)
  Receive Date: 20190916
  Receipt Date: 20190916
  Transmission Date: 20200122
  Serious: No
  Sender: FDA-Public Use
  Company Number: None

PATIENT
  Age: 27 Year
  Sex: Female
  Weight: 55.79 kg

DRUGS (3)
  1. HYDROXYPROGESTERONE [Suspect]
     Active Substance: HYDROXYPROGESTERONE
     Indication: PREMATURE LABOUR
     Dates: start: 20190912
  2. HYDROXYPROGESTERONE [Suspect]
     Active Substance: HYDROXYPROGESTERONE
     Indication: PREMATURE DELIVERY
     Dates: start: 20190912
  3. HYDROXYPROGESTERONE [Suspect]
     Active Substance: HYDROXYPROGESTERONE
     Indication: PREGNANCY
     Dates: start: 20190912

REACTIONS (4)
  - Injection site urticaria [None]
  - Injection site pruritus [None]
  - Injection site rash [None]
  - Maternal exposure during pregnancy [None]

NARRATIVE: CASE EVENT DATE: 20190912
